FAERS Safety Report 4965830-6 (Version None)
Quarter: 2006Q2

REPORT INFORMATION
  Report Type: 
  Country: None (occurrence: None)
  Receive Date: 20060407
  Receipt Date: 20060323
  Transmission Date: 20061013
  Serious: Yes (Other)
  Sender: FDA-Public Use
  Company Number: FRWYE502523MAR06

PATIENT
  Age: 39 Year
  Sex: Male

DRUGS (2)
  1. ENBREL [Suspect]
     Indication: RHEUMATOID ARTHRITIS
     Dosage: 25 MG
     Route: 058
     Dates: start: 20060317, end: 20060317
  2. CORTICOSTEROID NOS [Concomitant]
     Dosage: UNKNOWN

REACTIONS (4)
  - AMAUROSIS FUGAX [None]
  - FACE OEDEMA [None]
  - HEADACHE [None]
  - MIGRAINE WITH AURA [None]
